FAERS Safety Report 19277061 (Version 1)
Quarter: 2021Q2

REPORT INFORMATION
  Report Type: Spontaneous
  Country: US (occurrence: US)
  Receive Date: 20210520
  Receipt Date: 20210520
  Transmission Date: 20210717
  Serious: No
  Sender: FDA-Public Use
  Company Number: US-HIKMA PHARMACEUTICALS USA INC.-US-H14001-20-03304

PATIENT
  Sex: Male

DRUGS (5)
  1. INBRIJA [Suspect]
     Active Substance: LEVODOPA
     Indication: PARKINSON^S DISEASE
     Dosage: THREE TIMES A DAY EVERY EIGHT HOURS
  2. PREDNISONE. [Suspect]
     Active Substance: PREDNISONE
     Indication: ILL-DEFINED DISORDER
     Route: 065
  3. CARBIDOPA. [Concomitant]
     Active Substance: CARBIDOPA
     Indication: PRODUCT USED FOR UNKNOWN INDICATION
     Route: 065
  4. CARBIDOPA AND LEVODOPA [Suspect]
     Active Substance: CARBIDOPA\LEVODOPA
     Indication: PRODUCT USED FOR UNKNOWN INDICATION
     Dosage: ONE TABLET
     Route: 065
  5. INBRIJA [Suspect]
     Active Substance: LEVODOPA
     Indication: ON AND OFF PHENOMENON

REACTIONS (4)
  - Gastric disorder [Unknown]
  - Fatigue [Unknown]
  - Walking aid user [Unknown]
  - Musculoskeletal stiffness [Unknown]
